FAERS Safety Report 23282545 (Version 1)
Quarter: 2023Q4

REPORT INFORMATION
  Report Type: Spontaneous
  Country: DE (occurrence: DE)
  Receive Date: 20231211
  Receipt Date: 20231211
  Transmission Date: 20240110
  Serious: Yes (Other)
  Sender: FDA-Public Use
  Company Number: DE-JNJFOC-20230108633

PATIENT
  Age: 15 Year
  Sex: Female
  Weight: 75 kg

DRUGS (2)
  1. METHOTREXATE [Suspect]
     Active Substance: METHOTREXATE
     Indication: Product used for unknown indication
     Dosage: 7.500MG
     Route: 065
     Dates: start: 20220514
  2. SIMPONI [Suspect]
     Active Substance: GOLIMUMAB
     Indication: Juvenile idiopathic arthritis
     Dosage: 40.000MG
     Route: 058
     Dates: start: 20220103, end: 20221101

REACTIONS (7)
  - Uveitis [Recovered/Resolved]
  - Juvenile idiopathic arthritis [Recovered/Resolved]
  - Treatment noncompliance [Unknown]
  - Aspiration joint [Unknown]
  - Drug ineffective [Unknown]
  - Off label use [Unknown]
  - Therapy cessation [Unknown]

NARRATIVE: CASE EVENT DATE: 20220201
